FAERS Safety Report 15386042 (Version 1)
Quarter: 2018Q3

REPORT INFORMATION
  Report Type: Spontaneous
  Country: FR (occurrence: FR)
  Receive Date: 20180914
  Receipt Date: 20180914
  Transmission Date: 20181010
  Serious: Yes (Hospitalization)
  Sender: FDA-Public Use
  Company Number: FR-PFIZER INC-2018367705

PATIENT
  Age: 68 Year
  Sex: Male

DRUGS (1)
  1. SUTENT [Suspect]
     Active Substance: SUNITINIB MALATE
     Indication: GASTRIC CANCER
     Dosage: 37.5 MG, 1X/DAY
     Route: 048
     Dates: start: 201803, end: 20180802

REACTIONS (1)
  - Ecthyma [Not Recovered/Not Resolved]

NARRATIVE: CASE EVENT DATE: 20180720
